FAERS Safety Report 9258029 (Version 2)
Quarter: 2014Q1

REPORT INFORMATION
  Report Type: Report from Study
  Country: GB (occurrence: GB)
  Receive Date: 20130426
  Receipt Date: 20140130
  Transmission Date: 20141002
  Serious: Yes (Hospitalization, Other)
  Sender: FDA-Public Use
  Company Number: GB-JNJFOC-20130412941

PATIENT
  Age: 45 Year
  Sex: Male
  Weight: 128 kg

DRUGS (5)
  1. GOLIMUMAB [Suspect]
     Indication: ANKYLOSING SPONDYLITIS
     Dosage: BETWEEN 08-DEC-2012
     Route: 058
     Dates: start: 20130304
  2. GOLIMUMAB [Suspect]
     Indication: ANKYLOSING SPONDYLITIS
     Route: 058
     Dates: start: 20121208
  3. AMITRIPTYLINE [Concomitant]
     Route: 048
  4. OMEPRAZOLE [Concomitant]
     Route: 048
  5. SOLPADOL [Concomitant]
     Route: 048

REACTIONS (3)
  - Basal cell carcinoma [Recovered/Resolved]
  - Postoperative wound infection [Unknown]
  - Alanine aminotransferase increased [Unknown]
